FAERS Safety Report 4711024-9 (Version None)
Quarter: 2005Q2

REPORT INFORMATION
  Report Type: 
  Country: None (occurrence: None)
  Receive Date: 20050629
  Receipt Date: 20050308
  Transmission Date: 20051028
  Serious: No
  Sender: FDA-Public Use
  Company Number: 05P-163-0293367-00

PATIENT
  Age: 72 Year
  Sex: Female
  Weight: 58.0604 kg

DRUGS (4)
  1. HUMIRA [Suspect]
     Indication: RHEUMATOID ARTHRITIS
     Dosage: 40 MG, 1 IN 2 WK, SUBCUTNAEOUS
     Route: 058
     Dates: start: 20040601
  2. PREDNISONE TAB [Concomitant]
  3. ALENDROATE SODIUM [Concomitant]
  4. UNKNOWN MEDICATION [Concomitant]

REACTIONS (1)
  - VIRAL INFECTION [None]
